FAERS Safety Report 10239197 (Version 1)
Quarter: 2014Q2

REPORT INFORMATION
  Report Type: Spontaneous
  Country: US (occurrence: US)
  Receive Date: 20140616
  Receipt Date: 20140616
  Transmission Date: 20141212
  Serious: No
  Sender: FDA-Public Use
  Company Number: US-B.I. PHARMACEUTICALS,INC./RIDGEFIELD-2014-BI-25742BP

PATIENT
  Age: 79 Year
  Sex: Male
  Weight: 94 kg

DRUGS (3)
  1. SPIRIVA [Suspect]
     Indication: CHRONIC OBSTRUCTIVE PULMONARY DISEASE
     Dosage: 18 MCG
     Route: 055
     Dates: start: 2011, end: 201404
  2. SPIRIVA [Suspect]
     Dosage: 18 MCG
     Route: 055
     Dates: start: 201406
  3. SPIRIVA [Suspect]
     Dosage: 18 MCG
     Route: 048
     Dates: start: 20140606, end: 20140606

REACTIONS (4)
  - Dyspnoea [Recovered/Resolved]
  - Expired product administered [Recovered/Resolved]
  - Sciatica [Recovered/Resolved]
  - Incorrect route of drug administration [Recovered/Resolved]
